FAERS Safety Report 7282369-6 (Version None)
Quarter: 2011Q1

REPORT INFORMATION
  Report Type: 
  Country: None (occurrence: None)
  Receive Date: 20110125
  Receipt Date: 20110110
  Transmission Date: 20110831
  Serious: Yes (Death)
  Sender: FDA-Public Use
  Company Number: 025439

PATIENT
  Age: 23 Year
  Sex: Male

DRUGS (5)
  1. TRAMADOL HCL [Suspect]
  2. ACETAMINOPHEN W/ CODEINE [Suspect]
  3. ALPRAZOLAM [Suspect]
  4. MARIJUANA [Suspect]
  5. METHADONE [Suspect]

REACTIONS (1)
  - DRUG ABUSE [None]
